FAERS Safety Report 18475280 (Version 12)
Quarter: 2025Q1

REPORT INFORMATION
  Report Type: Spontaneous
  Country: US (occurrence: US)
  Receive Date: 20201106
  Receipt Date: 20250325
  Transmission Date: 20250408
  Serious: Yes (Other)
  Sender: PFIZER
  Company Number: US-PFIZER INC-2020429820

PATIENT
  Age: 63 Year
  Sex: Female
  Weight: 64.15 kg

DRUGS (9)
  1. IBRANCE [Suspect]
     Active Substance: PALBOCICLIB
     Indication: Breast cancer female
     Dates: start: 20200628, end: 20200628
  2. IBRANCE [Suspect]
     Active Substance: PALBOCICLIB
     Indication: Hormone receptor positive breast cancer
     Route: 048
     Dates: start: 20200630
  3. IBRANCE [Suspect]
     Active Substance: PALBOCICLIB
     Indication: Invasive ductal breast carcinoma
     Dosage: 1 TAB(S), PER ORAL DAILY
     Route: 048
  4. IBRANCE [Suspect]
     Active Substance: PALBOCICLIB
     Dosage: TAKE 1 TAB PO (PER ORAL) (WHOLE) DAILY ON DAYS 1-21 EVERY 28 DAYS
     Route: 048
  5. LETROZOLE [Concomitant]
     Active Substance: LETROZOLE
     Indication: Breast cancer
     Dates: start: 20200630
  6. LETROZOLE [Concomitant]
     Active Substance: LETROZOLE
     Indication: Hormone receptor positive breast cancer
  7. LETROZOLE [Concomitant]
     Active Substance: LETROZOLE
     Indication: Invasive ductal breast carcinoma
  8. XGEVA [Concomitant]
     Active Substance: DENOSUMAB
     Indication: Hormone receptor positive breast cancer
  9. XGEVA [Concomitant]
     Active Substance: DENOSUMAB
     Indication: Invasive ductal breast carcinoma
     Dates: start: 20200630

REACTIONS (9)
  - Neutropenia [Unknown]
  - Lung neoplasm malignant [Unknown]
  - Malignant neoplasm progression [Unknown]
  - Abdominal discomfort [Recovering/Resolving]
  - Nausea [Not Recovered/Not Resolved]
  - Lacrimation increased [Unknown]
  - Emotional disorder [Unknown]
  - Eye allergy [Unknown]
  - Sacral pain [Unknown]

NARRATIVE: CASE EVENT DATE: 20200101
